FAERS Safety Report 6876908-4 (Version None)
Quarter: 2010Q3

REPORT INFORMATION
  Report Type: 
  Country: None (occurrence: None)
  Receive Date: 20100727
  Receipt Date: 20100714
  Transmission Date: 20110219
  Serious: Yes (Hospitalization, Other)
  Sender: FDA-Public Use
  Company Number: CI-GILEAD-2010-0030418

PATIENT
  Age: 39 Year
  Sex: Female
  Weight: 65 kg

DRUGS (4)
  1. TRUVADA [Suspect]
     Indication: HIV INFECTION
     Dates: start: 20100304, end: 20100402
  2. EFAVIRENZ [Concomitant]
     Indication: HIV INFECTION
     Dates: start: 20100304, end: 20100402
  3. SULFAMETHOXAZOLE AND TRIMETHOPRIM [Concomitant]
     Indication: OPPORTUNISTIC INFECTION PROPHYLAXIS
     Dates: start: 20090804, end: 20100402
  4. ISONIAZID [Concomitant]
     Indication: ANTIBIOTIC PROPHYLAXIS
     Dates: start: 20090911, end: 20100313

REACTIONS (1)
  - PLASMODIUM FALCIPARUM INFECTION [None]
